FAERS Safety Report 17460146 (Version 1)
Quarter: 2020Q1

REPORT INFORMATION
  Report Type: Spontaneous
  Country: US (occurrence: US)
  Receive Date: 20200226
  Receipt Date: 20200226
  Transmission Date: 20200409
  Serious: No
  Sender: FDA-Public Use
  Company Number: US-PFIZER INC-2020080347

PATIENT
  Age: 87 Year
  Sex: Male

DRUGS (3)
  1. ADVIL [Suspect]
     Active Substance: IBUPROFEN
     Indication: MUSCLE DISORDER
     Dosage: 6 DF, UNK (6 TABLETS IN 24 HOUR PERIOD)
  2. ADVIL [Suspect]
     Active Substance: IBUPROFEN
     Indication: BACK PAIN
  3. CANNABIDIOL [Suspect]
     Active Substance: CANNABIDIOL
     Dosage: 3 MG, UNK

REACTIONS (2)
  - Hypoacusis [Unknown]
  - Intentional product misuse [Unknown]
